FAERS Safety Report 8236100-8 (Version None)
Quarter: 2012Q1

REPORT INFORMATION
  Report Type: 
  Country: None (occurrence: None)
  Receive Date: 20120327
  Receipt Date: 20120316
  Transmission Date: 20120608
  Serious: Yes (Hospitalization)
  Sender: FDA-Public Use
  Company Number: US-BIOGENIDEC-2012BI009527

PATIENT
  Age: 62 Year
  Sex: Female
  Weight: 53 kg

DRUGS (7)
  1. TYSABRI [Suspect]
     Indication: MULTIPLE SCLEROSIS
     Route: 042
     Dates: start: 20070605
  2. 4-AMINOPYRIDINE [Concomitant]
     Route: 048
     Dates: start: 20100929
  3. CALCIUM CARBONATE [Concomitant]
  4. FOSAMAX [Concomitant]
  5. VITAMIN D [Concomitant]
  6. GABAPENTIN [Concomitant]
     Indication: CONVULSION PROPHYLAXIS
     Route: 048
     Dates: start: 20110720
  7. AMLODIPINE [Concomitant]
     Route: 048

REACTIONS (1)
  - FEMORAL NECK FRACTURE [None]
